FAERS Safety Report 7557432-2 (Version None)
Quarter: 2011Q2

REPORT INFORMATION
  Report Type: 
  Country: None (occurrence: None)
  Receive Date: 20110616
  Receipt Date: 20110616
  Transmission Date: 20111010
  Serious: Yes (Other)
  Sender: FDA-Public Use
  Company Number: None

PATIENT
  Age: 57 Year
  Sex: Female
  Weight: 48.0813 kg

DRUGS (1)
  1. LAMOTRIGINE [Suspect]
     Indication: BIPOLAR DISORDER
     Dosage: 25MG-50MG QD PO
     Route: 048
     Dates: start: 20110526, end: 20110611

REACTIONS (4)
  - PHARYNGITIS STREPTOCOCCAL [None]
  - HERPES ZOSTER [None]
  - DRUG DOSE OMISSION [None]
  - RETCHING [None]
